FAERS Safety Report 9440251 (Version 2)
Quarter: 2013Q3

REPORT INFORMATION
  Report Type: Report from Study
  Country: CA (occurrence: CA)
  Receive Date: 20130805
  Receipt Date: 20130903
  Transmission Date: 20140515
  Serious: Yes (Hospitalization)
  Sender: FDA-Public Use
  Company Number: PHHY2013CA062341

PATIENT
  Sex: Female

DRUGS (2)
  1. EXJADE [Suspect]
     Indication: HAEMOCHROMATOSIS
     Dosage: 1000 MG, QD
     Route: 048
     Dates: start: 20130610
  2. EXJADE [Suspect]
     Dosage: 1 DF, UNK
     Route: 048
     Dates: start: 20130707, end: 20130716

REACTIONS (7)
  - Blood potassium decreased [Unknown]
  - Renal failure [Recovering/Resolving]
  - Dehydration [Unknown]
  - Jaundice [Unknown]
  - Feeling abnormal [Unknown]
  - Abdominal discomfort [Unknown]
  - Diarrhoea [Unknown]
